FAERS Safety Report 22588628 (Version 5)
Quarter: 2024Q1

REPORT INFORMATION
  Report Type: Other
  Country: CA (occurrence: None)
  Receive Date: 20230612
  Receipt Date: 20240212
  Transmission Date: 20240410
  Serious: Yes (Hospitalization)
  Sender: FDA-Public Use
  Company Number: CA-ROCHE-3342115

PATIENT
  Age: 51 Year
  Sex: Female

DRUGS (22)
  1. OCREVUS [Suspect]
     Active Substance: OCRELIZUMAB
     Indication: Relapsing-remitting multiple sclerosis
     Dosage: 300 MG AT DAY 0 AND 14, THEN 600 MG EVERY 6 MONTH
     Route: 042
     Dates: start: 20221216
  2. GABAPENTIN [Concomitant]
     Active Substance: GABAPENTIN
  3. ALERTEC [MODAFINIL] [Concomitant]
     Indication: Fatigue
     Dosage: FREQUENCY: TAKE TWO PILLS IN THE MORNING
  4. BACLOFEN [Concomitant]
     Active Substance: BACLOFEN
     Indication: Pain
     Dosage: FREQUENCY: TAKE TWO PILLS/DAY IN THE MORNING FOR PAIN.
  5. MYRBETRIQ [Concomitant]
     Active Substance: MIRABEGRON
     Indication: Hypertonic bladder
  6. MYRBETRIQ [Concomitant]
     Active Substance: MIRABEGRON
     Dosage: TAKE ONE PILL EVERY MORNING FOR OVERACTIVE BLADDER ISSUES
  7. FLUTICASONE PROPIONATE [Concomitant]
     Active Substance: FLUTICASONE PROPIONATE
     Indication: Sinusitis
     Dosage: TAKE 2 SPRAYS IN EACH NOSTRIL TWICE DAILY
     Route: 045
  8. BACTROBAN [Concomitant]
     Active Substance: MUPIROCIN CALCIUM
     Indication: Sinusitis
     Dosage: TAKE AS NEEDED WITH SORES AROUND NOSE
  9. MOMETASONE FUROATE [Concomitant]
     Active Substance: MOMETASONE FUROATE
     Indication: Psoriasis
  10. BIACNA [Concomitant]
     Indication: Acne
     Dosage: TAKE OINTMENT AS NEEDED WITH ACNE ON FACE
  11. LACTULOSE [Concomitant]
     Active Substance: LACTULOSE
     Dosage: (2 TBSP AT BEDTIME) - TO HELP MOVE BOWELS
  12. JAMIESON CALCIUM + D3 [Concomitant]
     Indication: Muscle spasms
     Dosage: TAKE ONE PILL 3 TIMES/DAY (MORNING/SUPPER/BEDTIME)
  13. JAMIESON PROBIOTIC [Concomitant]
     Dosage: ONE EVERY MORNING TO IMPROVE HEALTH
  14. SENOKOT-S [Concomitant]
     Active Substance: DOCUSATE SODIUM\SENNOSIDES
     Dosage: DOSE: TAKE ONE PILL/DAY TO HELP WITH STAYING REGULAR
  15. JAMIESON MAGNESIUM [Concomitant]
     Dosage: DOSE: TAKE TWO PILLS AT NIGHT TO HELP WITH BOWEL MOVEMENT.
  16. ARNICA MONTANA FLOWER [Concomitant]
     Active Substance: ARNICA MONTANA FLOWER
     Indication: Pain
  17. CANNABIS SATIVA SUBSP. INDICA TOP [Concomitant]
     Active Substance: CANNABIS SATIVA SUBSP. INDICA TOP
     Indication: Pain in extremity
  18. CANNABIS SATIVA SUBSP. INDICA TOP [Concomitant]
     Active Substance: CANNABIS SATIVA SUBSP. INDICA TOP
     Indication: Pain in extremity
  19. DIPHENHYDRAMINE [Concomitant]
     Active Substance: DIPHENHYDRAMINE
  20. METHYLPREDNISOLONE [Concomitant]
     Active Substance: METHYLPREDNISOLONE
  21. ACETAMINOPHEN [Concomitant]
     Active Substance: ACETAMINOPHEN
  22. TRAZODONE [Concomitant]
     Active Substance: TRAZODONE HYDROCHLORIDE
     Dosage: TAKE TWO PILLS AT NIGHT. TO HELP ME STAY ASLEEP ALL NIGHT.

REACTIONS (15)
  - Carpal tunnel syndrome [Recovering/Resolving]
  - Arthropathy [Not Recovered/Not Resolved]
  - Arthralgia [Unknown]
  - Pain in extremity [Unknown]
  - Herpes zoster [Recovered/Resolved]
  - Tremor [Not Recovered/Not Resolved]
  - Muscle twitching [Not Recovered/Not Resolved]
  - Fall [Unknown]
  - Skin discolouration [Recovered/Resolved]
  - Lip injury [Recovered/Resolved]
  - Gingival discolouration [Unknown]
  - Nasal septum deviation [Not Recovered/Not Resolved]
  - Epistaxis [Not Recovered/Not Resolved]
  - Osteoarthritis [Not Recovered/Not Resolved]
  - Rash [Recovered/Resolved]

NARRATIVE: CASE EVENT DATE: 20230101
